FAERS Safety Report 26117739 (Version 1)
Quarter: 2025Q4

REPORT INFORMATION
  Report Type: Spontaneous
  Country: US (occurrence: US)
  Receive Date: 20251203
  Receipt Date: 20251203
  Transmission Date: 20260118
  Serious: Yes (Hospitalization, Other)
  Sender: ANI
  Company Number: US-ANIPHARMA-2025-US-052049

PATIENT
  Age: 81 Year
  Sex: Female
  Weight: 64.41 kg

DRUGS (13)
  1. CORTICOTROPIN [Suspect]
     Active Substance: CORTICOTROPIN
     Indication: Polymyalgia rheumatica
     Dosage: INJECT 40 UNITS SUBQ TWICE A WEEK
     Route: 058
     Dates: start: 20250710, end: 20251120
  2. COENZYME Q10 [Concomitant]
     Active Substance: DIETARY SUPPLEMENT\UBIDECARENONE
  3. VITAMIN B12 [Concomitant]
     Active Substance: CYANOCOBALAMIN
  4. ASPIRIN [Concomitant]
     Active Substance: ASPIRIN
  5. VITAMIN D3 [Concomitant]
     Active Substance: CHOLECALCIFEROL
  6. PREDNISONE [Concomitant]
     Active Substance: PREDNISONE
  7. FOSAMAX [Concomitant]
     Active Substance: ALENDRONATE SODIUM
  8. LOSARTAN [Concomitant]
     Active Substance: LOSARTAN
  9. HYDROCORTISONE [Concomitant]
     Active Substance: HYDROCORTISONE
  10. HYDROCODONE [Concomitant]
     Active Substance: HYDROCODONE
  11. METOPROLOL [Concomitant]
     Active Substance: METOPROLOL
  12. ROBAXIN [Concomitant]
     Active Substance: METHOCARBAMOL
  13. FISH OIL [Concomitant]
     Active Substance: FISH OIL

REACTIONS (10)
  - Surgery [Unknown]
  - Stent placement [Not Recovered/Not Resolved]
  - Cholelithiasis [Unknown]
  - Product use in unapproved indication [Recovered/Resolved]
  - Arrhythmia [Unknown]
  - Pulmonary embolism [Unknown]
  - Crohn^s disease [Unknown]
  - Nephrolithiasis [Unknown]
  - Asthenia [Not Recovered/Not Resolved]
  - Decreased appetite [Not Recovered/Not Resolved]

NARRATIVE: CASE EVENT DATE: 20051101
